FAERS Safety Report 9044869 (Version 1)
Quarter: 2013Q1

REPORT INFORMATION
  Report Type: Spontaneous
  Country: US (occurrence: US)
  Receive Date: 20130130
  Receipt Date: 20130130
  Transmission Date: 20140127
  Serious: Yes (Other)
  Sender: FDA-Public Use
  Company Number: US-GLAXOSMITHKLINE-A1009185A

PATIENT
  Sex: Female

DRUGS (2)
  1. LAMOTRIGINE [Suspect]
     Indication: BIPOLAR DISORDER
     Dosage: 300MG PER DAY
     Dates: start: 201102, end: 201301
  2. SEROQUEL [Concomitant]

REACTIONS (13)
  - Ehlers-Danlos syndrome [Not Recovered/Not Resolved]
  - Rhinitis [Not Recovered/Not Resolved]
  - Monoplegia [Not Recovered/Not Resolved]
  - Abasia [Not Recovered/Not Resolved]
  - Pain [Not Recovered/Not Resolved]
  - Pain [Not Recovered/Not Resolved]
  - Panic attack [Not Recovered/Not Resolved]
  - Ataxia [Not Recovered/Not Resolved]
  - Headache [Not Recovered/Not Resolved]
  - Dysphemia [Not Recovered/Not Resolved]
  - Fatigue [Recovering/Resolving]
  - Hypersomnia [Not Recovered/Not Resolved]
  - Sedation [Not Recovered/Not Resolved]
